FAERS Safety Report 14154794 (Version 1)
Quarter: 2017Q4

REPORT INFORMATION
  Report Type: Spontaneous
  Country: US (occurrence: US)
  Receive Date: 20171102
  Receipt Date: 20171102
  Transmission Date: 20180321
  Serious: Yes (Hospitalization)
  Sender: FDA-Public Use
  Company Number: None

PATIENT
  Age: 3 Year
  Sex: Male
  Weight: 14.8 kg

DRUGS (7)
  1. ONCASPAR [Suspect]
     Active Substance: PEGASPARGASE
     Indication: ACUTE LYMPHOCYTIC LEUKAEMIA
     Dosage: ?          OTHER FREQUENCY:ONCE (SCHEDULED);?
     Route: 042
     Dates: start: 20170918, end: 20170918
  2. VINCRISTINE + SODIUM CHLORIDE [Concomitant]
  3. ONDANSETRON [Concomitant]
     Active Substance: ONDANSETRON
  4. DOXORUBICIN PF + SODIUM CHLORIDE [Concomitant]
  5. BACTRIM [Concomitant]
     Active Substance: SULFAMETHOXAZOLE\TRIMETHOPRIM
  6. LIDOCAINE-PRILOCAINE [Concomitant]
     Active Substance: LIDOCAINE\PRILOCAINE
  7. METHOTREXATE PF + SODIUM CHLORIDE [Concomitant]

REACTIONS (5)
  - Infusion related reaction [None]
  - Screaming [None]
  - Anaphylactic reaction [None]
  - Crying [None]
  - No reaction on previous exposure to drug [None]

NARRATIVE: CASE EVENT DATE: 20170918
